FAERS Safety Report 5074370-8 (Version None)
Quarter: 2006Q3

REPORT INFORMATION
  Report Type: 
  Country: None (occurrence: None)
  Receive Date: 20060803
  Receipt Date: 20060719
  Transmission Date: 20061208
  Serious: Yes (Other)
  Sender: FDA-Public Use
  Company Number: 2006S1006709

PATIENT
  Age: 47 Year
  Sex: Female
  Weight: 49.4421 kg

DRUGS (2)
  1. AMITRIPTYLINE HCL [Suspect]
     Indication: MIGRAINE PROPHYLAXIS
     Dosage: 100 MG QD PO
     Route: 048
     Dates: start: 20040504
  2. ESTRADIOL INJ [Concomitant]

REACTIONS (3)
  - BLOOD URIC ACID DECREASED [None]
  - BREAST CANCER FEMALE [None]
  - RED BLOOD CELL COUNT DECREASED [None]
